FAERS Safety Report 6738186-6 (Version None)
Quarter: 2010Q2

REPORT INFORMATION
  Report Type: 
  Country: None (occurrence: None)
  Receive Date: 20100520
  Receipt Date: 20100511
  Transmission Date: 20101027
  Serious: No
  Sender: FDA-Public Use
  Company Number: 011781

PATIENT
  Sex: Female
  Weight: 48.1 kg

DRUGS (15)
  1. KEPPRA [Suspect]
     Indication: CONVULSION
     Dosage: (1000 MG, EVERY NIGHT ORAL)
     Route: 048
     Dates: start: 20100329
  2. POTASSIUM [Concomitant]
  3. FOLIC ACID [Concomitant]
  4. FOSAMAX [Concomitant]
  5. BUSPAR [Concomitant]
  6. VALIUM [Concomitant]
  7. BENZONATATE [Concomitant]
  8. METOPROLOL [Concomitant]
  9. PREVACID [Concomitant]
  10. HYDROCODONE [Concomitant]
  11. ROPINIROLE [Concomitant]
  12. DILANTIN [Concomitant]
  13. SALBUTAMOL [Concomitant]
  14. VITAMIN B-12 [Concomitant]
  15. EVISTA /01303201/ [Concomitant]

REACTIONS (4)
  - DRUG DOSE OMISSION [None]
  - ECONOMIC PROBLEM [None]
  - SENSORY DISTURBANCE [None]
  - TREATMENT NONCOMPLIANCE [None]
